FAERS Safety Report 9356000 (Version 1)
Quarter: 2013Q2

REPORT INFORMATION
  Report Type: Spontaneous
  Country: US (occurrence: US)
  Receive Date: 20130619
  Receipt Date: 20130619
  Transmission Date: 20140414
  Serious: Yes (Hospitalization)
  Sender: FDA-Public Use
  Company Number: US-BAYER-2013-075327

PATIENT
  Age: 25 Year
  Sex: Female

DRUGS (13)
  1. YASMIN [Suspect]
  2. VERAPAMIL [Concomitant]
  3. NAPROXEN [Concomitant]
  4. METHOCARBAMOL [Concomitant]
  5. IBUPROFEN [Concomitant]
  6. SPIRONOLACTONE [Concomitant]
  7. AVANDIA [Concomitant]
  8. OMEPRAZOLE [Concomitant]
  9. METHYLPREDNISOLONE [Concomitant]
  10. CIPROFLOXACIN HCL [Concomitant]
  11. FAMOTIDINE [Concomitant]
  12. ALBUTEROL INHALER [Concomitant]
  13. ACIPHEX [Concomitant]

REACTIONS (2)
  - Deep vein thrombosis [None]
  - Pulmonary embolism [None]
